FAERS Safety Report 6328818-9 (Version None)
Quarter: 2009Q3

REPORT INFORMATION
  Report Type: 
  Country: None (occurrence: None)
  Receive Date: 20090824
  Receipt Date: 20090824
  Transmission Date: 20100115
  Serious: Yes (Other)
  Sender: FDA-Public Use
  Company Number: None

PATIENT
  Age: 54 Year
  Sex: Female
  Weight: 104.7809 kg

DRUGS (1)
  1. CRESTOR [Suspect]
     Indication: HYPERCHOLESTEROLAEMIA
     Dosage: 1 TAB DAILY
     Dates: start: 20090720, end: 20090818

REACTIONS (14)
  - ABDOMINAL DISTENSION [None]
  - CHEST PAIN [None]
  - CHROMATURIA [None]
  - CONSTIPATION [None]
  - DARK CIRCLES UNDER EYES [None]
  - DYSPNOEA EXERTIONAL [None]
  - FATIGUE [None]
  - FLATULENCE [None]
  - LIP SWELLING [None]
  - NASAL OEDEMA [None]
  - PRURITUS [None]
  - RASH [None]
  - SKIN DISCOLOURATION [None]
  - URINE ODOUR ABNORMAL [None]
